FAERS Safety Report 18670188 (Version 1)
Quarter: 2020Q4

REPORT INFORMATION
  Report Type: Spontaneous
  Country: GB (occurrence: GB)
  Receive Date: 20201228
  Receipt Date: 20201228
  Transmission Date: 20210114
  Serious: Yes (Life-Threatening, Hospitalization, Other)
  Sender: FDA-Public Use
  Company Number: GB-PFIZER INC-2020507065

PATIENT
  Age: 89 Year
  Sex: Female
  Weight: 92.2 kg

DRUGS (2)
  1. FLUCLOXACILLIN [Concomitant]
     Active Substance: FLUCLOXACILLIN
     Indication: SEPSIS
     Dosage: UNK
     Route: 042
     Dates: end: 20201023
  2. TAZOCIN [Suspect]
     Active Substance: PIPERACILLIN SODIUM\TAZOBACTAM SODIUM
     Indication: SEPSIS
     Dosage: 4.5 G
     Route: 042
     Dates: start: 20200624, end: 20200626

REACTIONS (5)
  - White blood cell count decreased [Recovered/Resolved]
  - Lethargy [Unknown]
  - Immobile [Unknown]
  - Somnolence [Unknown]
  - Neutropenia [Recovered/Resolved]

NARRATIVE: CASE EVENT DATE: 2020
